FAERS Safety Report 5947607-8 (Version None)
Quarter: 2008Q4

REPORT INFORMATION
  Report Type: 
  Country: None (occurrence: None)
  Receive Date: 20081107
  Receipt Date: 20081006
  Transmission Date: 20090506
  Serious: Yes (Hospitalization)
  Sender: FDA-Public Use
  Company Number: 14590

PATIENT
  Age: 52 Year
  Sex: Female

DRUGS (4)
  1. MORPHINE SULFATE [Suspect]
     Dosage: 60MG  TWICE DAILY  ORAL
     Route: 048
  2. DICYCLOMINE [Concomitant]
  3. DIAZEPAM [Concomitant]
  4. DEPO-ESTRADIOL [Concomitant]

REACTIONS (3)
  - CONDITION AGGRAVATED [None]
  - HEADACHE [None]
  - VOMITING [None]
